FAERS Safety Report 16851312 (Version 1)
Quarter: 2019Q3

REPORT INFORMATION
  Report Type: Spontaneous
  Country: US (occurrence: US)
  Receive Date: 20190925
  Receipt Date: 20190925
  Transmission Date: 20191005
  Serious: Yes (Hospitalization)
  Sender: FDA-Public Use
  Company Number: US-MYLANLABS-2019M1088961

PATIENT
  Sex: Male

DRUGS (7)
  1. LISINOPRIL. [Concomitant]
     Active Substance: LISINOPRIL
     Indication: HYPERTENSION
     Route: 065
  2. CLONIDINE. [Concomitant]
     Active Substance: CLONIDINE
     Indication: HYPERTENSION
     Route: 065
  3. LOPERAMIDE [Suspect]
     Active Substance: LOPERAMIDE
     Indication: PRODUCT USED FOR UNKNOWN INDICATION
     Dosage: BULK PACKAGE LOPERAMIDE PILL:DOSE UP TO 12.5TIME(200MG)FDA RECOMMENDED DOSE OF 16 MG
     Route: 048
  4. HYDROCHLOROTHIAZIDE. [Concomitant]
     Active Substance: HYDROCHLOROTHIAZIDE
     Indication: HYPERTENSION
     Route: 065
  5. HYDRALAZINE [Concomitant]
     Active Substance: HYDRALAZINE HYDROCHLORIDE
     Indication: HYPERTENSION
     Route: 065
  6. OXYCODONE [Suspect]
     Active Substance: OXYCODONE
     Indication: MUSCULOSKELETAL INJURY
     Dosage: PRESCRIPTION WAS FOR UP TO 120 MG DAILY, OR 180 MORPHINE MILLIGRAM EQUIVALENTS (MME), FOR 23 MONTHS
     Route: 065
  7. OXYCODONE [Suspect]
     Active Substance: OXYCODONE
     Dosage: THE PATIENT TRANSITIONED TO NON-PRESCRIBED OXYCODONE IN DOSES OF UP TO 180 MG/DAY (270 MME).
     Route: 065

REACTIONS (13)
  - Electrocardiogram PR prolongation [Recovering/Resolving]
  - Bundle branch block right [Recovering/Resolving]
  - Drug abuse [Recovering/Resolving]
  - Electrocardiogram QT prolonged [Recovering/Resolving]
  - Bundle branch block left [Recovering/Resolving]
  - Drug withdrawal syndrome [Recovering/Resolving]
  - Overdose [Recovering/Resolving]
  - Nausea [Recovering/Resolving]
  - Electrocardiogram ST segment abnormal [Recovering/Resolving]
  - Haematemesis [Recovering/Resolving]
  - Vomiting [Recovering/Resolving]
  - Drug use disorder [Recovering/Resolving]
  - Electrocardiogram QRS complex abnormal [Recovering/Resolving]
